FAERS Safety Report 6381249-8 (Version None)
Quarter: 2009Q3

REPORT INFORMATION
  Report Type: 
  Country: None (occurrence: None)
  Receive Date: 20090929
  Receipt Date: 20090917
  Transmission Date: 20100115
  Serious: Yes (Hospitalization, Other)
  Sender: FDA-Public Use
  Company Number: US-PFIZER INC-2009226553

PATIENT
  Sex: Male

DRUGS (1)
  1. DILANTIN [Suspect]
     Indication: HEAD INJURY
     Dosage: 100 MG, UNK

REACTIONS (20)
  - ANTICONVULSANT DRUG LEVEL INCREASED [None]
  - ASTHENIA [None]
  - BRAIN INJURY [None]
  - CONVULSION [None]
  - DIZZINESS [None]
  - DRUG DISPENSING ERROR [None]
  - DYSARTHRIA [None]
  - FALL [None]
  - GAIT DISTURBANCE [None]
  - HAEMATEMESIS [None]
  - HEADACHE [None]
  - IMPAIRED DRIVING ABILITY [None]
  - LOSS OF CONSCIOUSNESS [None]
  - MEMORY IMPAIRMENT [None]
  - MOVEMENT DISORDER [None]
  - OVERDOSE [None]
  - TREMOR [None]
  - URINARY INCONTINENCE [None]
  - VISION BLURRED [None]
  - VISUAL ACUITY REDUCED [None]
